FAERS Safety Report 6823762-2 (Version None)
Quarter: 2010Q3

REPORT INFORMATION
  Report Type: 
  Country: None (occurrence: None)
  Receive Date: 20100708
  Receipt Date: 20070308
  Transmission Date: 20110219
  Serious: No
  Sender: FDA-Public Use
  Company Number: US-PFIZER INC-2006105681

PATIENT
  Age: 61 Year
  Sex: Female
  Weight: 77.1 kg

DRUGS (10)
  1. CHANTIX [Suspect]
     Indication: SMOKING CESSATION THERAPY
     Route: 048
     Dates: start: 20060823
  2. CADUET [Concomitant]
  3. LABETALOL HCL [Concomitant]
  4. KLONOPIN [Concomitant]
  5. HYZAAR [Concomitant]
  6. AMARYL [Concomitant]
  7. WELLBUTRIN XL [Concomitant]
  8. GLUCOPHAGE [Concomitant]
  9. ACTOS [Concomitant]
  10. BYETTA [Concomitant]

REACTIONS (2)
  - ASTHENIA [None]
  - HYPERSOMNIA [None]
